FAERS Safety Report 12391835 (Version 1)
Quarter: 2016Q2

REPORT INFORMATION
  Report Type: Spontaneous
  Country: US (occurrence: US)
  Receive Date: 20160523
  Receipt Date: 20160523
  Transmission Date: 20160815
  Serious: No
  Sender: FDA-Public Use
  Company Number: US-AMGEN-USASP2015090841

PATIENT
  Age: 5 Month
  Sex: Male

DRUGS (3)
  1. NAPROXEN. [Concomitant]
     Active Substance: NAPROXEN
     Dosage: 500 MG, 2X
     Route: 048
     Dates: start: 1994
  2. ENBREL [Suspect]
     Active Substance: ETANERCEPT
     Indication: EXPOSURE DURING BREAST FEEDING
     Dosage: 50 MG, QWK
     Route: 063
     Dates: start: 2002
  3. PLAQUENIL [Concomitant]
     Active Substance: HYDROXYCHLOROQUINE SULFATE
     Dosage: 200 MG, X
     Route: 048
     Dates: start: 2015

REACTIONS (2)
  - Exposure during breast feeding [Unknown]
  - Constipation [Recovered/Resolved]

NARRATIVE: CASE EVENT DATE: 2015
